FAERS Safety Report 24970498 (Version 1)
Quarter: 2025Q1

REPORT INFORMATION
  Report Type: Spontaneous
  Country: GB (occurrence: GB)
  Receive Date: 20250214
  Receipt Date: 20250214
  Transmission Date: 20250409
  Serious: Yes (Other)
  Sender: MYLAN
  Company Number: GB-MHRA-EMIS-9244-18f7d99d-4600-45e2-b744-31d96a52b877

PATIENT
  Age: 25 Year
  Sex: Female
  Weight: 64 kg

DRUGS (4)
  1. DOXYCYCLINE [Suspect]
     Active Substance: DOXYCYCLINE
     Indication: Product used for unknown indication
     Dosage: 100 MILLIGRAM, BID (12 HOURS, ONE TO BE TAKEN TWICE A DAY100MG BD)
     Route: 065
     Dates: start: 20250124, end: 20250125
  2. HYDROXOCOBALAMIN [Concomitant]
     Active Substance: HYDROXOCOBALAMIN
     Indication: Vitamin B12 deficiency
     Route: 065
     Dates: start: 20241203, end: 20250115
  3. Cell based quadrivalent influenza vaccine [Concomitant]
     Indication: Vitamin B12 deficiency
     Route: 065
     Dates: start: 20241203, end: 20250115
  4. MINERALS\VITAMINS [Concomitant]
     Active Substance: MINERALS\VITAMINS
     Dosage: UNK UNK, QD (ONCE A DAY)
     Route: 065
     Dates: start: 20241211

REACTIONS (1)
  - Drug hypersensitivity [Recovered/Resolved]

NARRATIVE: CASE EVENT DATE: 20250124
